FAERS Safety Report 7941575-5 (Version None)
Quarter: 2011Q4

REPORT INFORMATION
  Report Type: 
  Country: None (occurrence: None)
  Receive Date: 20111108
  Receipt Date: 20110502
  Transmission Date: 20120403
  Serious: Yes (Other)
  Sender: FDA-Public Use
  Company Number: PHEH2004US10935

PATIENT
  Age: 64 Year
  Sex: Female

DRUGS (4)
  1. ZOMETA [Suspect]
     Indication: BREAST CANCER METASTATIC
  2. KEFLEX [Concomitant]
  3. ANTIBIOTICS (NO INGREDIENTS/SUBSTANCES) [Concomitant]
  4. PERIDEX (CHLORHEXIDINE GLUCONATE) [Concomitant]

REACTIONS (6)
  - ABSCESS JAW [None]
  - HYPOAESTHESIA ORAL [None]
  - HYPERBARIC OXYGEN THERAPY [None]
  - BONE DISORDER [None]
  - OSTEONECROSIS [None]
  - ORAL MUCOSAL EXFOLIATION [None]
